FAERS Safety Report 6665325-8 (Version None)
Quarter: 2010Q1

REPORT INFORMATION
  Report Type: 
  Country: None (occurrence: None)
  Receive Date: 20100331
  Receipt Date: 20100318
  Transmission Date: 20100710
  Serious: Yes (Other)
  Sender: FDA-Public Use
  Company Number: RB-04899-2010

PATIENT
  Age: 87 Year
  Sex: Female

DRUGS (1)
  1. MUCINEX [Suspect]
     Dosage: 1200 MG QD TOOK FOR 3-4 DAYS. ORAL
     Route: 048
     Dates: start: 20100301

REACTIONS (1)
  - BLOOD PRESSURE INCREASED [None]
